FAERS Safety Report 4521575-8 (Version None)
Quarter: 2004Q4

REPORT INFORMATION
  Report Type: 
  Country: None (occurrence: None)
  Receive Date: 20041208
  Receipt Date: 20041208
  Transmission Date: 20050328
  Serious: Yes (Congenital Anomaly, Other)
  Sender: FDA-Public Use
  Company Number: None

PATIENT
  Age: 20 Year
  Sex: Female
  Weight: 43.9989 kg

DRUGS (2)
  1. PAXIL [Suspect]
     Indication: NERVOUSNESS
     Dosage: ONE  EVERY NIGHT  ORAL
     Route: 048
     Dates: start: 20011001, end: 20040725
  2. PAXIL [Suspect]
     Indication: SOCIAL PHOBIA
     Dosage: ONE  EVERY NIGHT  ORAL
     Route: 048
     Dates: start: 20011001, end: 20040725

REACTIONS (7)
  - ABDOMINAL PAIN [None]
  - CONFUSIONAL STATE [None]
  - DEPRESSION [None]
  - DIZZINESS [None]
  - INTENTIONAL SELF-INJURY [None]
  - IRRITABILITY [None]
  - LACERATION [None]
